FAERS Safety Report 20068016 (Version 1)
Quarter: 2021Q4

REPORT INFORMATION
  Report Type: Other
  Country: US (occurrence: None)
  Receive Date: 20211115
  Receipt Date: 20211115
  Transmission Date: 20220303
  Serious: Yes (Other)
  Sender: FDA-Public Use
  Company Number: US-ROCHE-2952271

PATIENT
  Sex: Female

DRUGS (1)
  1. XELODA [Suspect]
     Active Substance: CAPECITABINE
     Indication: Product used for unknown indication
     Dosage: TAKE 2 TABLETS BY MOUTH 2 TIMES A DAY FOR 2 WEEKS AND 1 WEEK OFF
     Route: 048

REACTIONS (2)
  - Memory impairment [Unknown]
  - Temperature intolerance [Unknown]
